FAERS Safety Report 5116911-8 (Version None)
Quarter: 2006Q3

REPORT INFORMATION
  Report Type: 
  Country: None (occurrence: None)
  Receive Date: 20060925
  Receipt Date: 20060407
  Transmission Date: 20061208
  Serious: Yes (Other)
  Sender: FDA-Public Use
  Company Number: CHNY2006FR00930

PATIENT
  Age: 46 Year
  Sex: Female
  Weight: 61 kg

DRUGS (3)
  1. SCOPODERM TTS (NCH) (HYOSCINE HYDROBROMIDE) TRANS-THERAPEUTIC-SYSTEM [Suspect]
     Indication: PROPHYLAXIS AGAINST MOTION SICKNESS
     Dosage: 1 DF, Q72H, TRANSDERMAL
     Route: 062
     Dates: start: 20060205, end: 20060215
  2. ESOMEPRAZOLE (ESOMEPRAZOLE) [Concomitant]
  3. VALACYCLOVIR [Concomitant]

REACTIONS (21)
  - ACCOMMODATION DISORDER [None]
  - ANTICHOLINERGIC SYNDROME [None]
  - ASTHENIA [None]
  - BALANCE DISORDER [None]
  - BLOOD POTASSIUM INCREASED [None]
  - DIARRHOEA [None]
  - DIZZINESS [None]
  - DYSGEUSIA [None]
  - DYSPHAGIA [None]
  - HEADACHE [None]
  - HYPERMETROPIA [None]
  - LETHARGY [None]
  - MALAISE [None]
  - MEMORY IMPAIRMENT [None]
  - MIGRAINE WITH AURA [None]
  - NAUSEA [None]
  - PARAESTHESIA [None]
  - SOMNOLENCE [None]
  - SYNCOPE [None]
  - TETANY [None]
  - VISUAL DISTURBANCE [None]
